FAERS Safety Report 16745891 (Version 1)
Quarter: 2019Q3

REPORT INFORMATION
  Report Type: Report from Study
  Country: BR (occurrence: BR)
  Receive Date: 20190827
  Receipt Date: 20190827
  Transmission Date: 20191005
  Serious: Yes (Other)
  Sender: FDA-Public Use
  Company Number: PHHY2019BR199105

PATIENT

DRUGS (1)
  1. ENTRESTO [Suspect]
     Active Substance: SACUBITRIL\VALSARTAN
     Indication: CARDIAC DISORDER
     Dosage: 1 DF (24MG SACUBITRIL /26MG VALSARTAN), UNK
     Route: 065

REACTIONS (2)
  - Drug dependence [Unknown]
  - Product use in unapproved indication [Unknown]
